FAERS Safety Report 8374648-6 (Version None)
Quarter: 2012Q2

REPORT INFORMATION
  Report Type: 
  Country: None (occurrence: None)
  Receive Date: 20120521
  Receipt Date: 20110426
  Transmission Date: 20120825
  Serious: No
  Sender: FDA-Public Use
  Company Number: US-ASTRAZENECA-2011SE26680

PATIENT
  Sex: Female

DRUGS (4)
  1. UNSPECIFIED INDIGESTION MEDICATION [Concomitant]
  2. CARDIAC THERAPY [Concomitant]
  3. PRILOSEC OTC [Suspect]
     Indication: DYSPEPSIA
     Route: 048
     Dates: start: 20110321
  4. UNSPECIFIED SEIZURE MEDICATION [Concomitant]

REACTIONS (2)
  - INCORRECT DRUG ADMINISTRATION DURATION [None]
  - DRUG INEFFECTIVE [None]
